FAERS Safety Report 9101644 (Version 1)
Quarter: 2013Q1

REPORT INFORMATION
  Report Type: Spontaneous
  Country: US (occurrence: US)
  Receive Date: 20130218
  Receipt Date: 20130218
  Transmission Date: 20140127
  Serious: Yes (Other)
  Sender: FDA-Public Use
  Company Number: US-ASTRAZENECA-2013SE08971

PATIENT
  Age: 74 Year
  Sex: Female
  Weight: 70.8 kg

DRUGS (15)
  1. TENORMIN [Suspect]
     Indication: HYPERTENSION
     Route: 048
     Dates: start: 2012
  2. TENORMIN [Suspect]
     Indication: HYPERTENSION
     Route: 048
     Dates: start: 2012
  3. SYMBICORT PMDI [Suspect]
     Indication: ASTHMA
     Dosage: 160/4.5 MG, 2 PUFFS, TWO TIMES A DAY
     Route: 055
     Dates: start: 2012
  4. NEXIUM [Suspect]
     Indication: GASTROOESOPHAGEAL REFLUX DISEASE
     Route: 048
  5. PRILOSEC [Suspect]
     Indication: GASTROOESOPHAGEAL REFLUX DISEASE
     Route: 048
  6. PRILOSEC OTC [Suspect]
     Indication: GASTROOESOPHAGEAL REFLUX DISEASE
     Route: 048
  7. COUMADIN [Concomitant]
     Indication: THROMBOSIS
     Route: 048
  8. LIPITOR [Concomitant]
     Indication: BLOOD CHOLESTEROL INCREASED
     Route: 048
  9. SYNTHROID [Concomitant]
     Indication: THYROID DISORDER
     Route: 048
  10. LEVAQUIN [Concomitant]
     Indication: INFECTION
     Route: 048
  11. DEMADEX [Concomitant]
     Indication: FLUID RETENTION
     Route: 048
  12. PATADAY [Concomitant]
     Indication: CATARACT
     Dosage: 1 DROP EACH EYE DAILY
  13. SINGULAIR [Concomitant]
     Indication: ASTHMA
  14. SINGULAIR [Concomitant]
     Indication: DYSPNOEA
  15. DIFLUCAN [Concomitant]
     Indication: FUNGAL INFECTION
     Dosage: 150 MG WEEKLY

REACTIONS (13)
  - Retinal detachment [Unknown]
  - Cataract [Unknown]
  - Factor V deficiency [Unknown]
  - Ulcer [Unknown]
  - Oropharyngitis fungal [Unknown]
  - Genital infection fungal [Unknown]
  - Asthma [Unknown]
  - Respiratory disorder [Unknown]
  - Hypertension [Unknown]
  - Pruritus [Unknown]
  - Dermatitis [Unknown]
  - Off label use [Unknown]
  - Drug ineffective [Unknown]
